FAERS Safety Report 20513952 (Version 2)
Quarter: 2022Q3

REPORT INFORMATION
  Report Type: Spontaneous
  Country: US (occurrence: None)
  Receive Date: 20220224
  Receipt Date: 20220909
  Transmission Date: 20221027
  Serious: Yes (Death, Other)
  Sender: FDA-Public Use
  Company Number: 2022A081792

PATIENT
  Age: 77 Year
  Sex: Male
  Weight: 83.5 kg

DRUGS (30)
  1. NEXIUM [Suspect]
     Active Substance: ESOMEPRAZOLE MAGNESIUM
     Indication: Gastrooesophageal reflux disease
     Route: 048
     Dates: start: 2001, end: 2018
  2. NEXIUM [Suspect]
     Active Substance: ESOMEPRAZOLE MAGNESIUM
     Indication: Gastrooesophageal reflux disease
     Route: 048
     Dates: start: 2014, end: 2018
  3. NEXIUM [Suspect]
     Active Substance: ESOMEPRAZOLE MAGNESIUM
     Indication: Gastrooesophageal reflux disease
     Dosage: GENERIC
     Route: 065
     Dates: start: 2015, end: 2018
  4. INDOMETHACIN [Concomitant]
     Active Substance: INDOMETHACIN
     Indication: Pain
     Dates: start: 201308
  5. INDOMETHACIN [Concomitant]
     Active Substance: INDOMETHACIN
     Indication: Pain
     Dates: start: 201710
  6. INDOMETHACIN [Concomitant]
     Active Substance: INDOMETHACIN
     Indication: Pain
     Dates: start: 201807
  7. NAPROXEN [Concomitant]
     Active Substance: NAPROXEN
     Indication: Pain
     Dates: start: 201010
  8. NAPROXEN [Concomitant]
     Active Substance: NAPROXEN
     Indication: Pain
     Dates: start: 201011
  9. NAPROXEN [Concomitant]
     Active Substance: NAPROXEN
     Indication: Pain
     Dates: start: 201105
  10. NAPROXEN [Concomitant]
     Active Substance: NAPROXEN
     Indication: Pain
     Dates: start: 201206
  11. NAPROXEN [Concomitant]
     Active Substance: NAPROXEN
     Indication: Pain
     Dates: start: 201309
  12. AZITHROMYCIN [Concomitant]
     Active Substance: AZITHROMYCIN
     Indication: Infection
     Dates: start: 201202
  13. AZITHROMYCIN [Concomitant]
     Active Substance: AZITHROMYCIN
     Indication: Infection
     Dates: start: 201511
  14. DOXYCYCLINE [Concomitant]
     Active Substance: DOXYCYCLINE
     Indication: Infection
     Dates: start: 201709
  15. DOXYCYCLINE [Concomitant]
     Active Substance: DOXYCYCLINE
     Indication: Infection
     Dates: start: 201908
  16. LEVOFLOXACIN [Concomitant]
     Active Substance: LEVOFLOXACIN
     Indication: Infection
     Dates: start: 201312
  17. LEVAQUIN [Concomitant]
     Active Substance: LEVOFLOXACIN
     Indication: Infection
     Dates: start: 201005
  18. LISINOPRIL [Concomitant]
     Active Substance: LISINOPRIL
     Indication: Blood pressure abnormal
     Dates: start: 2014, end: 2020
  19. FUROSEMIDE [Concomitant]
     Active Substance: FUROSEMIDE
     Indication: Renal injury
     Dates: start: 201906
  20. FUROSEMIDE [Concomitant]
     Active Substance: FUROSEMIDE
     Indication: Renal injury
     Dates: start: 201909
  21. FUROSEMIDE [Concomitant]
     Active Substance: FUROSEMIDE
     Indication: Renal injury
     Dates: start: 201912
  22. HYDROCHLOROTHIAZIDE [Concomitant]
     Active Substance: HYDROCHLOROTHIAZIDE
     Indication: Blood pressure abnormal
     Dates: start: 2013, end: 2020
  23. HYDROCHLOROTHIAZIDE [Concomitant]
     Active Substance: HYDROCHLOROTHIAZIDE
     Indication: Blood pressure abnormal
     Dates: start: 201001
  24. ATORVASTATIN [Concomitant]
     Active Substance: ATORVASTATIN
     Indication: Blood cholesterol
     Dates: start: 2013, end: 2020
  25. ATORVASTATIN [Concomitant]
     Active Substance: ATORVASTATIN
     Indication: Blood cholesterol
     Dates: start: 201001
  26. ALLOPURINOL [Concomitant]
     Active Substance: ALLOPURINOL
     Indication: Gout
     Dates: start: 2013, end: 2016
  27. ACETAMINOPHEN [Concomitant]
     Active Substance: ACETAMINOPHEN
     Indication: Pain
  28. ASPIRIN [Concomitant]
     Active Substance: ASPIRIN
     Indication: Pain
  29. PAROXETINE [Concomitant]
     Active Substance: PAROXETINE
  30. ALPRAZOLAM [Concomitant]
     Active Substance: ALPRAZOLAM

REACTIONS (4)
  - Coronary artery disease [Fatal]
  - Chronic kidney disease [Unknown]
  - Acute kidney injury [Unknown]
  - Hyperparathyroidism secondary [Unknown]

NARRATIVE: CASE EVENT DATE: 20180101
